FAERS Safety Report 21196209 (Version 1)
Quarter: 2022Q3

REPORT INFORMATION
  Report Type: Report from Study
  Country: CO (occurrence: CO)
  Receive Date: 20220810
  Receipt Date: 20220810
  Transmission Date: 20221026
  Serious: Yes (Hospitalization)
  Sender: FDA-Public Use
  Company Number: CO-JNJFOC-20220801748

PATIENT
  Age: 27 Year
  Sex: Male
  Weight: 66 kg

DRUGS (8)
  1. RISPERDAL CONSTA [Suspect]
     Active Substance: RISPERIDONE
     Indication: Bipolar disorder
     Route: 030
     Dates: start: 20220714
  2. RISPERDAL CONSTA [Suspect]
     Active Substance: RISPERIDONE
  3. RISPERDAL CONSTA [Suspect]
     Active Substance: RISPERIDONE
  4. RISPERDAL CONSTA [Suspect]
     Active Substance: RISPERIDONE
  5. LITHIUM CARBONATE [Suspect]
     Active Substance: LITHIUM CARBONATE
     Indication: Product used for unknown indication
     Route: 065
     Dates: start: 20220714
  6. BIPERIDEN [Concomitant]
     Active Substance: BIPERIDEN
     Route: 065
  7. DIPHENHYDRAMINE [Concomitant]
     Active Substance: DIPHENHYDRAMINE
     Route: 065
  8. VALPROATE SODIUM [Concomitant]
     Active Substance: VALPROATE SODIUM
     Route: 065

REACTIONS (7)
  - Restlessness [Recovering/Resolving]
  - Swollen tongue [Recovering/Resolving]
  - Swelling face [Recovering/Resolving]
  - Tremor [Recovering/Resolving]
  - Drooling [Recovering/Resolving]
  - Hypoaesthesia [Recovering/Resolving]
  - Anxiety [Recovering/Resolving]
